FAERS Safety Report 21474531 (Version 1)
Quarter: 2022Q4

REPORT INFORMATION
  Report Type: Spontaneous
  Country: US (occurrence: US)
  Receive Date: 20221018
  Receipt Date: 20221018
  Transmission Date: 20230113
  Serious: No
  Sender: FDA-Public Use
  Company Number: US-009507513-2210USA006609

PATIENT
  Age: 61 Year
  Sex: Male

DRUGS (6)
  1. TEMODAR [Suspect]
     Active Substance: TEMOZOLOMIDE
     Indication: Astrocytoma, low grade
     Dosage: UNK
     Route: 048
  2. TEMODAR [Suspect]
     Active Substance: TEMOZOLOMIDE
     Indication: Glioblastoma
  3. LOMUSTINE [Concomitant]
     Active Substance: LOMUSTINE
     Indication: Astrocytoma, low grade
     Dosage: UNK
  4. LOMUSTINE [Concomitant]
     Active Substance: LOMUSTINE
     Indication: Glioblastoma
  5. AVASTIN [Concomitant]
     Active Substance: BEVACIZUMAB
     Indication: Astrocytoma, low grade
  6. AVASTIN [Concomitant]
     Active Substance: BEVACIZUMAB
     Indication: Glioblastoma

REACTIONS (1)
  - Product use in unapproved indication [Unknown]
